FAERS Safety Report 10080070 (Version 4)
Quarter: 2014Q3

REPORT INFORMATION
  Report Type: Report from Study
  Country: JP (occurrence: JP)
  Receive Date: 20140415
  Receipt Date: 20140718
  Transmission Date: 20150326
  Serious: Yes (Other)
  Sender: FDA-Public Use
  Company Number: JP-SHIONOGI, INC-2014000264

PATIENT
  Age: 78 Year
  Sex: Male

DRUGS (7)
  1. DORIPENEM [Suspect]
     Active Substance: DORIPENEM
     Dosage: 1 G, TID
     Route: 041
     Dates: start: 20140227, end: 20140326
  2. VENOGLOBULIN-IH [Concomitant]
     Indication: PSOAS ABSCESS
     Dosage: 5 G, QD
     Route: 065
     Dates: start: 20140228, end: 20140302
  3. CLIDAMACIN [Concomitant]
     Indication: PSOAS ABSCESS
     Dosage: 1800 MG, QD
     Route: 065
     Dates: start: 20140228, end: 20140415
  4. DORIPENEM [Suspect]
     Active Substance: DORIPENEM
     Indication: PSOAS ABSCESS
     Dosage: 1 G, BID
     Route: 041
     Dates: start: 20140226, end: 20140226
  5. ENSURE [Suspect]
     Active Substance: AMINO ACIDS\DEXTROSE\ELECTROLYTES NOS\SOYBEAN OIL\VITAMINS
     Indication: PSOAS ABSCESS
     Dosage: 450 ML, QD
     Route: 048
     Dates: start: 20140304, end: 20140311
  6. CEFMETAZOLE SODIUM [Concomitant]
     Active Substance: CEFMETAZOLE SODIUM
     Indication: PSOAS ABSCESS
     Dosage: 3 G, QD
     Route: 065
     Dates: start: 20140223, end: 20140226
  7. BIOFERMIN R [Concomitant]
     Active Substance: BACILLUS SUBTILIS\LACTOBACILLUS ACIDOPHILUS\STREPTOCOCCUS FAECAIS
     Indication: DIARRHOEA
     Dosage: 3 G, QD
     Route: 048
     Dates: start: 20140307

REACTIONS (4)
  - Diarrhoea [Recovering/Resolving]
  - Alanine aminotransferase increased [Recovering/Resolving]
  - Blood potassium increased [Recovered/Resolved]
  - Aspartate aminotransferase increased [Recovering/Resolving]

NARRATIVE: CASE EVENT DATE: 20140304
